FAERS Safety Report 7245496-5 (Version None)
Quarter: 2011Q1

REPORT INFORMATION
  Report Type: 
  Country: None (occurrence: None)
  Receive Date: 20110126
  Receipt Date: 20110112
  Transmission Date: 20110831
  Serious: No
  Sender: FDA-Public Use
  Company Number: US-ELI_LILLY_AND_COMPANY-US201010001133

PATIENT
  Sex: Female

DRUGS (15)
  1. NIACIN [Concomitant]
     Dosage: 2 TABLETS 50 MG, DAILY
  2. MULTI-VITAMIN [Concomitant]
     Dosage: UNK, DAILY (1/D)
  3. ASPIRIN [Concomitant]
     Dosage: 0.81 D/F, DAILY (1/D)
  4. VITAMIN B COMPLEX CAP [Concomitant]
     Dosage: UNK, DAILY (1/D)
  5. TRIAMTERENE AND HYDROCHLOROTHIAZID [Concomitant]
     Dosage: 37.5 D/F, DAILY HALF A PILL
  6. MELOXICAM [Concomitant]
     Dosage: 7.5, AS NEEDED
  7. PRESERVISION LUTEIN EYE VITA.+MIN.SUP.SOFTG. [Concomitant]
     Dosage: UNK, 2/D
  8. D3-VICOTRAT [Concomitant]
     Dosage: 400 IU, DAILY (1/D)
  9. KLOR-CON [Concomitant]
     Dosage: 8 MEQ, DAILY
  10. CALCIUM CITRATE W/VITAMIN D NOS [Concomitant]
  11. D3-VICOTRAT [Concomitant]
     Dosage: 2000 IU, DAILY (1/D)
  12. METHOCARBAMOL [Concomitant]
     Dosage: 500 MG, AS NEEDED
  13. OMEPRAZOLE [Concomitant]
     Dosage: 20 MG, AS NEEDED
  14. RESTASIS [Concomitant]
     Dosage: UNK, 2/D
  15. FORTEO [Suspect]
     Indication: OSTEOPOROSIS
     Dosage: 20 UG, DAILY (1/D)
     Dates: start: 20100922

REACTIONS (4)
  - ARTHRALGIA [None]
  - INJECTION SITE HAEMATOMA [None]
  - INJECTION SITE REACTION [None]
  - HEADACHE [None]
